FAERS Safety Report 12089406 (Version 1)
Quarter: 2016Q1

REPORT INFORMATION
  Report Type: Spontaneous
  Country: US (occurrence: US)
  Receive Date: 20160218
  Receipt Date: 20160218
  Transmission Date: 20160526
  Serious: No
  Sender: FDA-Public Use
  Company Number: US-PERRIGO-15US009436

PATIENT
  Age: 68 Year
  Sex: Male
  Weight: 70.3 kg

DRUGS (1)
  1. CETIRIZINE HYDROCHLORIDE. [Suspect]
     Active Substance: CETIRIZINE HYDROCHLORIDE
     Indication: EAR CONGESTION
     Dosage: 10 MG, QD
     Route: 048
     Dates: start: 201508, end: 201508

REACTIONS (3)
  - Somnolence [Recovered/Resolved]
  - Off label use [Recovered/Resolved]
  - Drug administered to patient of inappropriate age [Recovered/Resolved]

NARRATIVE: CASE EVENT DATE: 201508
